FAERS Safety Report 7589506-4 (Version None)
Quarter: 2011Q3

REPORT INFORMATION
  Report Type: 
  Country: None (occurrence: None)
  Receive Date: 20110705
  Receipt Date: 20110624
  Transmission Date: 20111222
  Serious: Yes (Hospitalization, Other)
  Sender: FDA-Public Use
  Company Number: US-JNJFOC-20110512545

PATIENT
  Sex: Female

DRUGS (2)
  1. NUCYNTA [Suspect]
     Indication: RHEUMATOID ARTHRITIS
     Route: 048
     Dates: start: 20110516, end: 20110526
  2. NUCYNTA [Suspect]
     Indication: PAIN
     Route: 048
     Dates: start: 20110516, end: 20110526

REACTIONS (5)
  - TRANSIENT ISCHAEMIC ATTACK [None]
  - NAUSEA [None]
  - EATING DISORDER [None]
  - DEHYDRATION [None]
  - MENTAL STATUS CHANGES [None]
